FAERS Safety Report 20937444 (Version 1)
Quarter: 2022Q2

REPORT INFORMATION
  Report Type: Spontaneous
  Country: RO (occurrence: RO)
  Receive Date: 20220609
  Receipt Date: 20220609
  Transmission Date: 20220721
  Serious: Yes (Other)
  Sender: FDA-Public Use
  Company Number: RO-ASTELLAS-2022US020568

PATIENT
  Age: 54 Year
  Sex: Male

DRUGS (4)
  1. ELIGARD [Suspect]
     Active Substance: LEUPROLIDE ACETATE
     Indication: Prostate cancer
     Route: 065
     Dates: start: 201707
  2. ENZALUTAMIDE [Suspect]
     Active Substance: ENZALUTAMIDE
     Indication: Prostate cancer
     Route: 065
     Dates: start: 202108
  3. BICALUTAMIDE [Suspect]
     Active Substance: BICALUTAMIDE
     Indication: Prostate cancer
     Route: 065
     Dates: start: 201309
  4. BICALUTAMIDE [Suspect]
     Active Substance: BICALUTAMIDE
     Route: 065
     Dates: start: 201707

REACTIONS (11)
  - Ureteric obstruction [Unknown]
  - Hydronephrosis [Unknown]
  - Prostate cancer [Unknown]
  - Prostatic specific antigen abnormal [Unknown]
  - Blood testosterone abnormal [Unknown]
  - Blood creatine abnormal [Unknown]
  - Blood urea abnormal [Unknown]
  - Rash pruritic [Unknown]
  - Blood glucose abnormal [Unknown]
  - Back pain [Unknown]
  - Asthenia [Unknown]

NARRATIVE: CASE EVENT DATE: 20191201
